FAERS Safety Report 5339211-X (Version None)
Quarter: 2007Q2

REPORT INFORMATION
  Report Type: 
  Country: None (occurrence: None)
  Receive Date: 20070330
  Receipt Date: 20060626
  Transmission Date: 20071010
  Serious: No
  Sender: FDA-Public Use
  Company Number: 2006UW13384

PATIENT
  Age: 53 Year
  Sex: Male

DRUGS (5)
  1. LISINOPRIL [Suspect]
  2. NORVASC [Concomitant]
  3. COREG [Concomitant]
  4. FUROSEMIDE [Concomitant]
  5. DIGITEK [Concomitant]

REACTIONS (1)
  - CARDIAC FAILURE CONGESTIVE [None]
